FAERS Safety Report 22107726 (Version 3)
Quarter: 2023Q2

REPORT INFORMATION
  Report Type: Spontaneous
  Country: JP (occurrence: JP)
  Receive Date: 20230317
  Receipt Date: 20230418
  Transmission Date: 20230721
  Serious: Yes (Hospitalization, Other)
  Sender: FDA-Public Use
  Company Number: JP-KYOWAKIRIN-2023AKK003676

PATIENT
  Age: 7 Decade
  Sex: Male

DRUGS (4)
  1. PEGFILGRASTIM [Suspect]
     Active Substance: PEGFILGRASTIM
     Indication: Colony stimulating factor therapy
     Dosage: UNK
     Route: 058
     Dates: start: 20230221, end: 20230221
  2. JEVTANA [Concomitant]
     Active Substance: CABAZITAXEL
     Indication: Prostate cancer
     Dosage: 25 MILLIGRAM/SQ. METER
     Route: 065
     Dates: start: 20230221
  3. JEVTANA [Concomitant]
     Active Substance: CABAZITAXEL
     Dosage: 25 MILLIGRAM/SQ. METER
     Route: 065
     Dates: start: 20230327
  4. PREDNISOLONE [Concomitant]
     Active Substance: PREDNISOLONE
     Indication: Prostate cancer
     Dosage: UNK
     Route: 065

REACTIONS (4)
  - Febrile neutropenia [Recovered/Resolved]
  - Drug ineffective [Recovered/Resolved]
  - Off label use [Unknown]
  - Chemotherapy [Unknown]

NARRATIVE: CASE EVENT DATE: 20230228
